FAERS Safety Report 6152516-8 (Version None)
Quarter: 2009Q2

REPORT INFORMATION
  Report Type: 
  Country: None (occurrence: None)
  Receive Date: 20090413
  Receipt Date: 20090406
  Transmission Date: 20091009
  Serious: Yes (Other)
  Sender: FDA-Public Use
  Company Number: US-ASTRAZENECA-2009UW08711

PATIENT
  Age: 79 Year
  Sex: Female

DRUGS (1)
  1. METOPROLOL SUCCINATE [Suspect]
     Route: 048

REACTIONS (4)
  - CARDIAC PACEMAKER INSERTION [None]
  - DIABETES MELLITUS [None]
  - DIVERTICULITIS [None]
  - URINARY INCONTINENCE [None]
